FAERS Safety Report 9913557 (Version 1)
Quarter: 2014Q1

REPORT INFORMATION
  Report Type: Spontaneous
  Country: JP (occurrence: None)
  Receive Date: 20140218
  Receipt Date: 20140218
  Transmission Date: 20141002
  Serious: Yes (Other)
  Sender: FDA-Public Use
  Company Number: FK201400468

PATIENT
  Age: 61 Year
  Sex: Male

DRUGS (2)
  1. FLUOROURACIL [Suspect]
     Indication: OESOPHAGEAL CARCINOMA
     Dosage: 800 MG/M2, INTRAVENOUS (NOT OTHERWISE SPECIFIED)
  2. NEDAPLATIN (NEDAPLATIN) [Concomitant]

REACTIONS (6)
  - Leukoencephalopathy [None]
  - Speech disorder [None]
  - Hemiparesis [None]
  - Gaze palsy [None]
  - Dysarthria [None]
  - Altered state of consciousness [None]
